FAERS Safety Report 9185343 (Version 1)
Quarter: 2013Q1

REPORT INFORMATION
  Report Type: Spontaneous
  Country: US (occurrence: US)
  Receive Date: 20130325
  Receipt Date: 20130325
  Transmission Date: 20140127
  Serious: Yes (Hospitalization)
  Sender: FDA-Public Use
  Company Number: US-BAYER-2013-035891

PATIENT
  Age: 17 Year
  Sex: Female

DRUGS (4)
  1. BEYAZ [Suspect]
  2. PERCOCET [Concomitant]
  3. HYDROCODONE W/APAP [Concomitant]
     Dosage: UNK
     Dates: start: 20121220
  4. CYCLOBENZAPRINE [Concomitant]
     Dosage: UNK
     Dates: start: 20121220

REACTIONS (1)
  - Pulmonary embolism [None]
